FAERS Safety Report 8839198 (Version 1)
Quarter: 2012Q4

REPORT INFORMATION
  Report Type: 
  Country: AU (occurrence: AU)
  Receive Date: 20121015
  Receipt Date: 20121015
  Transmission Date: 20130627
  Serious: Yes (Other)
  Sender: FDA-Public Use
  Company Number: AU-JNJFOC-20120906867

PATIENT
  Sex: Male
  Weight: 91 kg

DRUGS (7)
  1. REMICADE [Suspect]
     Indication: CROHN^S DISEASE
     Route: 042
  2. REMICADE [Suspect]
     Indication: CROHN^S DISEASE
     Route: 042
     Dates: start: 20120615, end: 20120806
  3. RANITIDINE [Concomitant]
     Indication: PREMEDICATION
     Route: 048
     Dates: start: 20120806
  4. HYDROCORTISONE [Concomitant]
     Indication: PREMEDICATION
     Route: 042
     Dates: start: 20120806
  5. PARACETAMOL [Concomitant]
     Indication: PREMEDICATION
     Route: 048
     Dates: start: 20120806
  6. PROMETHAZINE [Concomitant]
     Indication: PREMEDICATION
     Route: 048
     Dates: start: 20120806
  7. METHOTREXATE [Concomitant]
     Indication: CROHN^S DISEASE
     Route: 065
     Dates: start: 20120424

REACTIONS (5)
  - Infusion related reaction [Recovering/Resolving]
  - Urticaria [Recovered/Resolved]
  - Rash [Recovered/Resolved]
  - Tachycardia [Recovered/Resolved]
  - Chills [Unknown]
